FAERS Safety Report 22283051 (Version 1)
Quarter: 2023Q2

REPORT INFORMATION
  Report Type: Spontaneous
  Country: CN (occurrence: CN)
  Receive Date: 20230504
  Receipt Date: 20230504
  Transmission Date: 20230721
  Serious: Yes (Other)
  Sender: FDA-Public Use
  Company Number: CN-STERISCIENCE B.V.-2023-ST-001263

PATIENT

DRUGS (15)
  1. ONDANSETRON [Suspect]
     Active Substance: ONDANSETRON
     Indication: Product used for unknown indication
     Dosage: THE PATIENT^S MOTHER DOSE WAS 16MG OF ONDANSETRON AS A INFUSION OF 2 ML/HOUR; BOLUS 0.5 ML/TIME ; LO
     Route: 064
  2. OMEPRAZOLE [Suspect]
     Active Substance: OMEPRAZOLE
     Indication: Product used for unknown indication
     Dosage: THE PATIENT^S MOTHER DOSE WAS 40 MG
     Route: 064
  3. INSULIN NOS [Suspect]
     Active Substance: INSULIN NOS
     Indication: Product used for unknown indication
     Dosage: UNK
     Route: 064
  4. DEXAMETHASONE [Suspect]
     Active Substance: DEXAMETHASONE
     Indication: Product used for unknown indication
     Dosage: THE PATIENT^S MOTHER DOSE WAS 5 MG
     Route: 064
  5. LIDOCAINE [Suspect]
     Active Substance: LIDOCAINE
     Indication: Product used for unknown indication
     Dosage: UNK
     Route: 064
  6. FENTANYL [Suspect]
     Active Substance: FENTANYL
     Indication: Product used for unknown indication
     Dosage: THE PATIENT^S MOTHER DOSE WAS 200 MICROGRAMS (UG)
     Route: 064
  7. FENTANYL [Suspect]
     Active Substance: FENTANYL
     Dosage: THE PATIENT^S MOTHER DOSE WAS 0.8 MG, AS A INFUSION OF 2 ML/HOUR; BOLUS 0.5 ML/TIME; LOCKOUT TIME 15
     Route: 064
  8. PROPOFOL [Suspect]
     Active Substance: PROPOFOL
     Indication: Product used for unknown indication
     Dosage: THE PATIENT^S MOTHER DOSE WAS 100 MG
     Route: 064
  9. ROCURONIUM [Suspect]
     Active Substance: ROCURONIUM BROMIDE
     Indication: Product used for unknown indication
     Dosage: THE PATIENT^S MOTHER DOSE WAS 50 MG
     Route: 064
  10. ROPIVACAINE [Suspect]
     Active Substance: ROPIVACAINE
     Indication: Product used for unknown indication
     Dosage: UNK
     Route: 064
  11. SEVOFLURANE [Suspect]
     Active Substance: SEVOFLURANE
     Indication: Product used for unknown indication
     Dosage: UNK
     Route: 064
  12. REMIFENTANIL [Suspect]
     Active Substance: REMIFENTANIL
     Indication: Product used for unknown indication
     Dosage: THE PATIENT^S MOTHER DOSE WAS 0.05-0.1 UG/KG/MIN WAS CONTINUOUSLY INFUSED
     Route: 064
  13. LACTATED RINGERS SOLUTION [Suspect]
     Active Substance: CALCIUM CHLORIDE\POTASSIUM CHLORIDE\SODIUM CHLORIDE\SODIUM LACTATE
     Indication: Product used for unknown indication
     Dosage: THE PATIENT^S MOTHER DOSE WAS 2100 ML
     Route: 064
  14. HETASTARCH [Suspect]
     Active Substance: HETASTARCH
     Indication: Product used for unknown indication
     Dosage: THE PATIENT^S MOTHER DOSE WAS 500 ML
     Route: 064
  15. SODIUM CHLORIDE [Suspect]
     Active Substance: SODIUM CHLORIDE
     Indication: Product used for unknown indication
     Dosage: THE PATIENT^S MOTHER DOSE WAS 100ML OF SODIUM CHLORIDE AS A INFUSION OF 2 ML/HOUR; BOLUS 0.5 ML/TIME
     Route: 064

REACTIONS (2)
  - Premature baby [Unknown]
  - Foetal exposure during pregnancy [Unknown]
